FAERS Safety Report 23018179 (Version 11)
Quarter: 2024Q1

REPORT INFORMATION
  Report Type: Report from Study
  Country: CA (occurrence: CA)
  Receive Date: 20231003
  Receipt Date: 20240314
  Transmission Date: 20240410
  Serious: Yes (Hospitalization, Other)
  Sender: FDA-Public Use
  Company Number: CA-JNJFOC-20230965852

PATIENT
  Age: 15 Year
  Sex: Male
  Weight: 56 kg

DRUGS (14)
  1. REMICADE [Suspect]
     Active Substance: INFLIXIMAB
     Indication: Crohn^s disease
     Dosage: WEEK 0 DOSE RECEIVED AS INPATIENT.
     Route: 041
     Dates: start: 20230922, end: 202309
  2. REMICADE [Suspect]
     Active Substance: INFLIXIMAB
     Dosage: AT WEEK 2
     Route: 041
     Dates: start: 202309, end: 202309
  3. REMICADE [Suspect]
     Active Substance: INFLIXIMAB
     Dosage: 10MG/KG AT WEEK 6 AND EVERY 6 WEEKS THEREAFTER
     Route: 041
     Dates: start: 20230927, end: 2023
  4. REMICADE [Suspect]
     Active Substance: INFLIXIMAB
     Route: 041
     Dates: start: 20231018
  5. REMICADE [Suspect]
     Active Substance: INFLIXIMAB
     Route: 041
     Dates: start: 2023
  6. REMICADE [Suspect]
     Active Substance: INFLIXIMAB
     Dosage: STAT DOSE
     Route: 041
     Dates: start: 20231108
  7. REMICADE [Suspect]
     Active Substance: INFLIXIMAB
     Dosage: RE-INDUCING PATIENT AT WEEKS 0, 2, AND 6 WEEKS
     Route: 041
     Dates: start: 2023
  8. REMICADE [Suspect]
     Active Substance: INFLIXIMAB
     Dosage: EARLIEST TREATMENT START DATE ALSO REPORTED AS 22-SEP-2023
     Route: 041
     Dates: start: 20231024
  9. REMICADE [Suspect]
     Active Substance: INFLIXIMAB
     Route: 041
     Dates: start: 20240117
  10. REMICADE [Suspect]
     Active Substance: INFLIXIMAB
     Route: 041
  11. PREDNISONE [Concomitant]
     Active Substance: PREDNISONE
     Indication: Product used for unknown indication
     Dosage: DAILY
     Route: 065
  12. PREDNISONE [Concomitant]
     Active Substance: PREDNISONE
     Route: 065
  13. VITAMINS NOS [Concomitant]
     Active Substance: VITAMINS
     Indication: Product used for unknown indication
     Route: 065
  14. PANTOPRAZOLE [Concomitant]
     Active Substance: PANTOPRAZOLE
     Indication: Product used for unknown indication
     Route: 065

REACTIONS (7)
  - Crohn^s disease [Not Recovered/Not Resolved]
  - Off label use [Unknown]
  - Weight decreased [Not Recovered/Not Resolved]
  - Drug level decreased [Unknown]
  - Pyrexia [Recovered/Resolved]
  - Infusion related reaction [Recovered/Resolved]
  - Drug ineffective [Unknown]

NARRATIVE: CASE EVENT DATE: 20230101
